FAERS Safety Report 6315253-2 (Version None)
Quarter: 2009Q3

REPORT INFORMATION
  Report Type: 
  Country: None (occurrence: None)
  Receive Date: 20090819
  Receipt Date: 20090811
  Transmission Date: 20100115
  Serious: Yes (Hospitalization)
  Sender: FDA-Public Use
  Company Number: PHHY2009GB23315

PATIENT
  Sex: Female

DRUGS (5)
  1. GLEEVEC [Suspect]
     Indication: GASTROINTESTINAL STROMAL TUMOUR
     Dosage: 400 MG, UNK
     Route: 048
     Dates: start: 20090512
  2. PENICILLIN V [Concomitant]
     Indication: SPLENECTOMY
     Dosage: 250 MG
     Route: 048
     Dates: start: 20010101
  3. GAVISCON CHEWABLE TABLETS [Concomitant]
     Indication: DYSPEPSIA
     Dosage: PRN
     Route: 048
  4. CALCIUM CARBONATE [Concomitant]
     Indication: OSTEOPOROSIS
     Dosage: 1.25 MG
     Route: 048
     Dates: start: 20060101
  5. COLECALCIFEROL [Concomitant]
     Indication: OSTEOPOROSIS
     Dosage: 5 MCG
     Route: 048
     Dates: start: 20060101

REACTIONS (2)
  - CARDIAC DISORDER [None]
  - CHEST PAIN [None]
